FAERS Safety Report 7197576-0 (Version None)
Quarter: 2010Q4

REPORT INFORMATION
  Report Type: 
  Country: None (occurrence: None)
  Receive Date: 20101227
  Receipt Date: 20101215
  Transmission Date: 20110411
  Serious: Yes (Death, Other)
  Sender: FDA-Public Use
  Company Number: JP-JNJFOC-20101007448

PATIENT
  Sex: Female
  Weight: 51 kg

DRUGS (13)
  1. DOXORUBICIN HCL [Suspect]
     Indication: OVARIAN CANCER RECURRENT
     Dosage: CYCLE 1
     Route: 042
  2. NEU-UP [Concomitant]
     Indication: PROPHYLAXIS
     Route: 042
  3. NEU-UP [Concomitant]
     Route: 042
  4. NEU-UP [Concomitant]
     Route: 042
  5. NEU-UP [Concomitant]
     Route: 042
  6. NEU-UP [Concomitant]
     Indication: BONE MARROW FAILURE
     Route: 042
  7. NEU-UP [Concomitant]
     Route: 042
  8. NEU-UP [Concomitant]
     Route: 042
  9. NEU-UP [Concomitant]
     Route: 042
  10. PRIMPERAN TAB [Concomitant]
     Indication: VOMITING
     Route: 048
  11. FLUMARIN [Concomitant]
     Indication: PROPHYLAXIS
     Route: 042
  12. GENTACIN [Concomitant]
     Indication: PROPHYLAXIS
     Route: 042
  13. CALONAL [Concomitant]
     Indication: PYREXIA
     Route: 048

REACTIONS (3)
  - BONE MARROW FAILURE [None]
  - HAEMATEMESIS [None]
  - OVARIAN CANCER [None]
